FAERS Safety Report 14539144 (Version 1)
Quarter: 2018Q1

REPORT INFORMATION
  Report Type: Spontaneous
  Country: US (occurrence: US)
  Receive Date: 20180216
  Receipt Date: 20180216
  Transmission Date: 20180509
  Serious: Yes (Hospitalization)
  Sender: FDA-Public Use
  Company Number: US-BEH-2018087900

PATIENT
  Age: 52 Year
  Sex: Female
  Weight: 163.26 kg

DRUGS (20)
  1. PLAVIX [Concomitant]
     Active Substance: CLOPIDOGREL BISULFATE
     Route: 065
  2. HIZENTRA [Suspect]
     Active Substance: HUMAN IMMUNOGLOBULIN G
     Indication: IMMUNODEFICIENCY
     Dosage: UNK
     Route: 058
  3. LMX                                /00033401/ [Concomitant]
     Route: 065
  4. FLONASE [Concomitant]
     Active Substance: FLUTICASONE PROPIONATE
     Route: 065
  5. CRANBERRY                          /01512301/ [Concomitant]
     Active Substance: CRANBERRY
     Route: 065
  6. DILAUDID [Concomitant]
     Active Substance: HYDROMORPHONE HYDROCHLORIDE
     Route: 065
  7. IPRATROPIUM/ALBUTEROL [Concomitant]
     Active Substance: ALBUTEROL\IPRATROPIUM
     Route: 065
  8. THEOPHYLLINE [Concomitant]
     Active Substance: THEOPHYLLINE ANHYDROUS
     Route: 065
  9. ACETAMINOPHEN. [Concomitant]
     Active Substance: ACETAMINOPHEN
     Route: 065
  10. LANTUS [Concomitant]
     Active Substance: INSULIN GLARGINE
     Route: 065
  11. ZYRTEC [Concomitant]
     Active Substance: CETIRIZINE HYDROCHLORIDE
     Route: 065
  12. VITAMIN E                          /00110501/ [Concomitant]
     Active Substance: TOCOPHEROL
     Route: 065
  13. HIZENTRA [Suspect]
     Active Substance: HUMAN IMMUNOGLOBULIN G
     Dosage: 50 MG/KG, QW
     Route: 058
     Dates: start: 20171214
  14. MUCINEX [Concomitant]
     Active Substance: GUAIFENESIN
     Route: 065
  15. EPINEPHRINE. [Concomitant]
     Active Substance: EPINEPHRINE
     Route: 065
  16. HUMALOG [Concomitant]
     Active Substance: INSULIN LISPRO
     Route: 065
  17. TESSALON [Concomitant]
     Active Substance: BENZONATATE
     Route: 065
  18. DOCUSATE [Concomitant]
     Active Substance: DOCUSATE
     Route: 065
  19. VALIUM [Concomitant]
     Active Substance: DIAZEPAM
     Route: 065
  20. GABAPENTIN. [Concomitant]
     Active Substance: GABAPENTIN
     Route: 065

REACTIONS (2)
  - Respiratory disorder [Unknown]
  - Immune system disorder [Unknown]

NARRATIVE: CASE EVENT DATE: 20180208
